FAERS Safety Report 7226247-7 (Version None)
Quarter: 2011Q1

REPORT INFORMATION
  Report Type: 
  Country: None (occurrence: None)
  Receive Date: 20110114
  Receipt Date: 20110105
  Transmission Date: 20110831
  Serious: Yes (Disabling, Other)
  Sender: FDA-Public Use
  Company Number: PHHY2011CH00977

PATIENT
  Sex: Female

DRUGS (4)
  1. OXYCONTIN [Concomitant]
     Indication: PAIN
     Dosage: 10 MG, QD
  2. MARCOUMAR [Concomitant]
     Indication: THROMBOSIS
     Dosage: UNK
  3. AFINITOR [Suspect]
     Indication: RENAL CELL CARCINOMA
     Dosage: 10 MG, QD
     Route: 048
     Dates: start: 20090601, end: 20110107
  4. ZOMETA [Suspect]
     Indication: METASTASES TO BONE
     Dosage: 10 MG, QMO
     Dates: start: 20080101

REACTIONS (3)
  - ATAXIA [None]
  - HYPOAESTHESIA [None]
  - POLYNEUROPATHY [None]
